FAERS Safety Report 6148518-8 (Version None)
Quarter: 2009Q2

REPORT INFORMATION
  Report Type: 
  Country: None (occurrence: None)
  Receive Date: 20090406
  Receipt Date: 20090406
  Transmission Date: 20091009
  Serious: Yes (Other)
  Sender: FDA-Public Use
  Company Number: None

PATIENT
  Age: 52 Year
  Sex: Female
  Weight: 77.1115 kg

DRUGS (1)
  1. AVAPRO [Suspect]
     Indication: HYPERTENSION
     Dosage: 150 MG. ONCE A DAY PO
     Route: 048
     Dates: start: 20070806, end: 20090228

REACTIONS (17)
  - ARTHRALGIA [None]
  - ATROPHY [None]
  - BALANCE DISORDER [None]
  - CARPAL TUNNEL SYNDROME [None]
  - CONJUNCTIVAL HAEMORRHAGE [None]
  - COSTOCHONDRITIS [None]
  - DRY EYE [None]
  - JOINT SWELLING [None]
  - MONARTHRITIS [None]
  - MUSCLE SPASMS [None]
  - MUSCULAR WEAKNESS [None]
  - OSTEOARTHRITIS [None]
  - RASH MACULAR [None]
  - RASH PRURITIC [None]
  - SKIN LESION [None]
  - SYSTEMIC LUPUS ERYTHEMATOSUS [None]
  - WALKING AID USER [None]
